FAERS Safety Report 13964807 (Version 3)
Quarter: 2017Q4

REPORT INFORMATION
  Report Type: Spontaneous
  Country: DE (occurrence: DE)
  Receive Date: 20170913
  Receipt Date: 20171006
  Transmission Date: 20180320
  Serious: Yes (Life-Threatening, Hospitalization, Other)
  Sender: FDA-Public Use
  Company Number: DE-B.I. PHARMACEUTICALS,INC./RIDGEFIELD-2017-BI-050047

PATIENT
  Age: 69 Year
  Sex: Female
  Weight: 115 kg

DRUGS (1)
  1. JARDIANCE [Suspect]
     Active Substance: EMPAGLIFLOZIN
     Indication: TYPE 2 DIABETES MELLITUS
     Route: 048
     Dates: start: 20170601, end: 20170703

REACTIONS (8)
  - Abdominal pain upper [Unknown]
  - Oedematous pancreatitis [Unknown]
  - Cardiomegaly [Unknown]
  - Vomiting [Unknown]
  - Pancreatic calcification [Unknown]
  - Duodenitis [Unknown]
  - Pancreatitis [Recovered/Resolved]
  - Nausea [Unknown]

NARRATIVE: CASE EVENT DATE: 20170702
